FAERS Safety Report 25211763 (Version 1)
Quarter: 2025Q2

REPORT INFORMATION
  Report Type: Spontaneous
  Country: US (occurrence: US)
  Receive Date: 20250418
  Receipt Date: 20250418
  Transmission Date: 20250717
  Serious: No
  Sender: ROCHE
  Company Number: US-ROCHE-10000258997

PATIENT
  Age: 74 Year
  Sex: Female

DRUGS (2)
  1. VABYSMO [Suspect]
     Active Substance: FARICIMAB-SVOA
     Indication: Neovascular age-related macular degeneration
     Route: 050
  2. HD aflibercept [Concomitant]

REACTIONS (2)
  - Vitreous haze [Not Recovered/Not Resolved]
  - Keratic precipitates [Recovering/Resolving]
